FAERS Safety Report 9044833 (Version 1)
Quarter: 2013Q1

REPORT INFORMATION
  Report Type: Report from Study
  Country: US (occurrence: US)
  Receive Date: 20130130
  Receipt Date: 20130130
  Transmission Date: 20140127
  Serious: No
  Sender: FDA-Public Use
  Company Number: US-ABBOTT-12P-163-0949250-00

PATIENT
  Age: 85 Year
  Sex: Female

DRUGS (20)
  1. HUMIRA 40 MG/0.8 ML PEN [Suspect]
     Indication: RHEUMATOID ARTHRITIS
     Route: 058
     Dates: start: 20120615
  2. CITALOPRAM [Concomitant]
     Indication: DEPRESSION
     Dosage: AS NEEDED
  3. PHENYTOIN [Concomitant]
     Indication: CONVULSION
     Dosage: 1 CAP IN MORNING AND 2 CAPS IN AFTERNOON
  4. PREDNISONE [Concomitant]
     Indication: RHEUMATOID ARTHRITIS
     Dosage: DAILY
  5. SIMVASTATIN [Concomitant]
     Indication: BLOOD CHOLESTEROL
     Dosage: DAILY
  6. WARFARIN [Concomitant]
     Indication: ANTICOAGULANT THERAPY
     Dosage: DAILY
  7. ONDANSETRON [Concomitant]
     Indication: NAUSEA
     Dosage: EVERY 8 HOURS AS NEEDED
  8. RANITIDINE [Concomitant]
     Indication: GASTROOESOPHAGEAL REFLUX DISEASE
     Dosage: DAILY
  9. TRICOR [Concomitant]
     Indication: BLOOD CHOLESTEROL
     Dosage: DAILY
  10. MULTAQ [Concomitant]
     Indication: ATRIAL FIBRILLATION
  11. ICAPS [Concomitant]
     Indication: MACULAR DEGENERATION
  12. GLIPIZIDE XL [Concomitant]
     Indication: DIABETES MELLITUS
     Dosage: DAILY
  13. JANUVIA [Concomitant]
     Indication: DIABETES MELLITUS
     Dosage: DAILY
     Dates: end: 20120726
  14. ALPRAZOLAM [Concomitant]
     Indication: ANXIETY
     Dosage: AS NEEDED
  15. FOLIC ACID [Concomitant]
     Indication: PRODUCT USED FOR UNKNOWN INDICATION
     Dosage: DAILY
  16. MIRTAZAPINE [Concomitant]
     Indication: DEPRESSION
     Dosage: DAILY
  17. THYROXINE [Concomitant]
     Indication: THYROID DISORDER
     Dosage: DAILY
  18. NEXIUM [Concomitant]
     Indication: GASTROOESOPHAGEAL REFLUX DISEASE
     Dosage: DAILY
  19. PROBIOTIC [Concomitant]
     Indication: PRODUCT USED FOR UNKNOWN INDICATION
     Dosage: DAILY
  20. METHOTREXATE [Concomitant]
     Indication: RHEUMATOID ARTHRITIS

REACTIONS (4)
  - Injection site pain [Recovered/Resolved]
  - Injection site pain [Recovered/Resolved]
  - Pain [Not Recovered/Not Resolved]
  - Gait disturbance [Not Recovered/Not Resolved]
